FAERS Safety Report 5814396-7 (Version None)
Quarter: 2008Q3

REPORT INFORMATION
  Report Type: 
  Country: None (occurrence: None)
  Receive Date: 20080715
  Receipt Date: 20080630
  Transmission Date: 20090109
  Serious: Yes (Other)
  Sender: FDA-Public Use
  Company Number: 2008S1010303

PATIENT
  Age: 83 Year
  Sex: Female

DRUGS (13)
  1. DOXAZOSIN MESYLATE [Suspect]
     Indication: ESSENTIAL HYPERTENSION
     Dosage: 1 MG;TWICE A DAY; ORAL
     Route: 048
     Dates: start: 20080124, end: 20080415
  2. AMITRIPTYLINE HCL [Concomitant]
  3. HYDROCHLORIDE [Concomitant]
  4. AMLODIPINE [Concomitant]
  5. ATENOLOL [Concomitant]
  6. ATORVASTATIN CALCIUM [Concomitant]
  7. ACETAMINOPHEN W/ CODEINE [Concomitant]
  8. FUROSEMIDE [Concomitant]
  9. LORATADINE [Concomitant]
  10. MIXTARD /00634701/ [Concomitant]
  11. OMEPRAZOLE [Concomitant]
  12. RAMIPRIL [Concomitant]
  13. KETOCONAZOLE [Concomitant]

REACTIONS (1)
  - HALLUCINATION, VISUAL [None]
